FAERS Safety Report 9669408 (Version 1)
Quarter: 2013Q4

REPORT INFORMATION
  Report Type: Spontaneous
  Country: US (occurrence: None)
  Receive Date: 20131104
  Receipt Date: 20131104
  Transmission Date: 20140711
  Serious: Yes (Hospitalization)
  Sender: FDA-Public Use
  Company Number: None

PATIENT
  Age: 89 Year
  Sex: Female
  Weight: 52.6 kg

DRUGS (12)
  1. ELIQUIS [Suspect]
     Indication: ATRIAL FIBRILLATION
     Dosage: 1 TABLET
     Route: 048
  2. ALPRAZOLAM [Concomitant]
  3. COMBIGAN [Concomitant]
  4. DIGOXIN [Concomitant]
  5. FISH OIL [Concomitant]
  6. FLONASE [Concomitant]
  7. BONIVA [Concomitant]
  8. SYNTHROID [Concomitant]
  9. BISTOLIC 5MG [Concomitant]
  10. MULTIVITAMIN [Concomitant]
  11. PANTOPRAZOLE [Concomitant]
  12. PREDNISOLONE [Concomitant]

REACTIONS (1)
  - Upper gastrointestinal haemorrhage [None]
